FAERS Safety Report 20113874 (Version 1)
Quarter: 2021Q4

REPORT INFORMATION
  Report Type: Report from Study
  Country: BR (occurrence: BR)
  Receive Date: 20211125
  Receipt Date: 20211125
  Transmission Date: 20220303
  Serious: Yes (Other)
  Sender: FDA-Public Use
  Company Number: BR-NOVARTISPH-NVSC2021BR269630

PATIENT
  Age: 47 Year
  Sex: Female

DRUGS (4)
  1. LETROZOLE [Suspect]
     Active Substance: LETROZOLE
     Indication: Product used for unknown indication
     Dosage: 2.5 MG, QD (CONTINUOUSLY)
     Route: 065
     Dates: start: 201907
  2. RIBOCICLIB [Suspect]
     Active Substance: RIBOCICLIB
     Indication: Product used for unknown indication
     Dosage: 600 MG, QD (FOR 21 DAYS EVERY 28 DAYS)
     Route: 065
     Dates: start: 201907
  3. ZOLEDRONIC ACID [Suspect]
     Active Substance: ZOLEDRONIC ACID
     Indication: Product used for unknown indication
     Dosage: 4 MG (EVERY 28 DAYS)
     Route: 065
     Dates: start: 201907, end: 202003
  4. DENOSUMAB [Concomitant]
     Active Substance: DENOSUMAB
     Indication: Product used for unknown indication
     Dosage: 120 MG (EVERY 28 DAYS)
     Route: 065
     Dates: start: 202003

REACTIONS (4)
  - Neutropenia [Unknown]
  - Blood creatinine increased [Unknown]
  - Hepatic lesion [Unknown]
  - Bone lesion [Unknown]

NARRATIVE: CASE EVENT DATE: 20200701
